FAERS Safety Report 7825093-0 (Version None)
Quarter: 2011Q4

REPORT INFORMATION
  Report Type: 
  Country: None (occurrence: None)
  Receive Date: 20111019
  Receipt Date: 20110912
  Transmission Date: 20120403
  Serious: No
  Sender: FDA-Public Use
  Company Number: US-BRISTOL-MYERS SQUIBB COMPANY-16050999

PATIENT
  Age: 53 Year
  Sex: Female
  Weight: 76 kg

DRUGS (1)
  1. AVALIDE [Suspect]
     Indication: HYPERTENSION
     Dosage: 1DF=300/12.5 MG,PREVIOUSLY AVALIDE 300/25 MG

REACTIONS (5)
  - NAUSEA [None]
  - FEELING JITTERY [None]
  - DRY SKIN [None]
  - HYPOAESTHESIA [None]
  - PRURITUS [None]
